FAERS Safety Report 11380296 (Version 1)
Quarter: 2015Q3

REPORT INFORMATION
  Report Type: Spontaneous
  Country: US (occurrence: None)
  Receive Date: 20150813
  Receipt Date: 20150813
  Transmission Date: 20151125
  Serious: Yes (Other)
  Sender: FDA-Public Use
  Company Number: None

PATIENT
  Age: 65 Year
  Sex: Male

DRUGS (1)
  1. INTRON A [Suspect]
     Active Substance: INTERFERON ALFA-2B
     Indication: MALIGNANT MELANOMA
     Route: 058
     Dates: start: 20150321, end: 20150812

REACTIONS (2)
  - Malignant neoplasm progression [None]
  - Drug ineffective [None]

NARRATIVE: CASE EVENT DATE: 20150812
